FAERS Safety Report 8514276-2 (Version None)
Quarter: 2012Q2

REPORT INFORMATION
  Report Type: 
  Country: None (occurrence: None)
  Receive Date: 20120406
  Receipt Date: 20111118
  Transmission Date: 20120825
  Serious: Yes (Hospitalization)
  Sender: FDA-Public Use
  Company Number: US-CYPR-2011-000075

PATIENT
  Sex: Male
  Weight: 94 kg

DRUGS (10)
  1. ASPIRIN [Suspect]
     Indication: CORONARY ARTERY DISEASE
     Dosage: 162 MG 1X ORAL)
     Route: 048
     Dates: start: 20091222
  2. GLUCOPHAGE XR [Concomitant]
  3. CYPHER STENT [Concomitant]
  4. NITROSTAT [Concomitant]
  5. COREG [Concomitant]
  6. LOTENSIN [Concomitant]
  7. GLUCOTROL [Concomitant]
  8. TRICOR [Concomitant]
  9. LIPITOR [Concomitant]
  10. CLOPIDOGREL [Suspect]
     Indication: ANTIPLATELET THERAPY
     Dosage: 75 MG QD ORAL)
     Route: 048
     Dates: start: 20110105

REACTIONS (1)
  - CHEST PAIN [None]
